FAERS Safety Report 7319071-8 (Version None)
Quarter: 2011Q1

REPORT INFORMATION
  Report Type: 
  Country: None (occurrence: None)
  Receive Date: 20110228
  Receipt Date: 20110217
  Transmission Date: 20110831
  Serious: Yes (Other)
  Sender: FDA-Public Use
  Company Number: DE-JNJFOC-20110205830

PATIENT
  Sex: Female

DRUGS (2)
  1. REGAINE MAENNER [Suspect]
     Route: 061
  2. REGAINE MAENNER [Suspect]
     Indication: PRODUCT USED FOR UNKNOWN INDICATION
     Route: 061

REACTIONS (3)
  - DEPRESSION [None]
  - MENTAL DISORDER [None]
  - WRONG DRUG ADMINISTERED [None]
